FAERS Safety Report 10047014 (Version 2)
Quarter: 2014Q2

REPORT INFORMATION
  Report Type: Spontaneous
  Country: JP (occurrence: None)
  Receive Date: 20140327
  Receipt Date: 20140409
  Transmission Date: 20141212
  Serious: Yes (Other)
  Sender: FDA-Public Use
  Company Number: 201403000149

PATIENT
  Age: 41 Year
  Sex: Male
  Weight: 58 kg

DRUGS (13)
  1. NITRIC OXIDE [Suspect]
     Indication: CARDIAC FAILURE CONGESTIVE
     Dosage: 20 PPM, CONTINUOUS
     Route: 055
     Dates: start: 20140317, end: 20140319
  2. NITRIC OXIDE [Suspect]
     Indication: VENTRICULAR ASSIST DEVICE INSERTION
     Dosage: 20 PPM, CONTINUOUS
     Route: 055
     Dates: start: 20140317, end: 20140319
  3. SOLDEM 3A [Concomitant]
  4. KCL [Concomitant]
  5. MULTIVITAMINS [Concomitant]
  6. DIPRIVAN [Concomitant]
  7. PREDOPA [Suspect]
  8. DOBUTREX [Concomitant]
  9. MILRILA [Concomitant]
  10. DORMICUM [Concomitant]
  11. IRRADIATED RED CELLS CONCENTRATES-LEUKOCYTES (RED BLOOD CELLS, CONCENTRATED) [Concomitant]
  12. PLASMA, FRESH FROZEN [Concomitant]
  13. PROTAMINE [Concomitant]

REACTIONS (2)
  - Procedural haemorrhage [None]
  - Haemoglobin decreased [None]
